FAERS Safety Report 24217419 (Version 1)
Quarter: 2024Q3

REPORT INFORMATION
  Report Type: Spontaneous
  Country: US (occurrence: US)
  Receive Date: 20240816
  Receipt Date: 20240816
  Transmission Date: 20241016
  Serious: Yes (Other)
  Sender: CATALYST PHARMA
  Company Number: US-CATALYSTPHARMACEUTICALPARTNERS-US-CATA-24-00862

PATIENT
  Age: 60 Year
  Sex: Male

DRUGS (1)
  1. FYCOMPA [Suspect]
     Active Substance: PERAMPANEL
     Indication: Product used for unknown indication
     Dosage: ONE 10 MG TABLET EVERY NIGHT AT BED TIME
     Route: 048

REACTIONS (1)
  - Vagal nerve stimulator implantation [Unknown]

NARRATIVE: CASE EVENT DATE: 20240801
